FAERS Safety Report 22927753 (Version 2)
Quarter: 2024Q3

REPORT INFORMATION
  Report Type: Spontaneous
  Country: US (occurrence: US)
  Receive Date: 20230911
  Receipt Date: 20240922
  Transmission Date: 20241016
  Serious: No
  Sender: CIPLA
  Company Number: US-CIPLA LTD.-2022US06523

PATIENT

DRUGS (2)
  1. DICLOFENAC [Suspect]
     Active Substance: DICLOFENAC
     Indication: Osteoarthritis
     Dosage: UNK, 1% SOLUTION IN 100 GMS TUBE
     Route: 065
  2. DICLOFENAC [Suspect]
     Active Substance: DICLOFENAC
     Indication: Vaginal prolapse
     Dosage: UNK
     Route: 067
     Dates: start: 20221028

REACTIONS (3)
  - Vulvovaginal burning sensation [Recovered/Resolved]
  - Accidental exposure to product by elderly person [Unknown]
  - Vomiting [Recovered/Resolved]

NARRATIVE: CASE EVENT DATE: 20221028
